FAERS Safety Report 7589058-9 (Version None)
Quarter: 2011Q3

REPORT INFORMATION
  Report Type: 
  Country: None (occurrence: None)
  Receive Date: 20110705
  Receipt Date: 20110606
  Transmission Date: 20111222
  Serious: Yes (Hospitalization, Other)
  Sender: FDA-Public Use
  Company Number: US-BAYER-2011-018996

PATIENT
  Age: 29 Year
  Sex: Female
  Weight: 58.957 kg

DRUGS (14)
  1. DROSPIRENONE AND ETHINYL ESTRADIOL [Suspect]
     Indication: PRODUCT USED FOR UNKNOWN INDICATION
     Dosage: UNK
     Dates: start: 20090701, end: 20091001
  2. HUMIRA [Concomitant]
     Dosage: 40 MG, UNK
  3. KETOROLAC TROMETHAMINE [Concomitant]
  4. TORADOL [Concomitant]
  5. KLONOPIN [Concomitant]
  6. METHOTREXATE [Concomitant]
     Dosage: UNK UNK, QD
     Route: 048
  7. ATARAX [Concomitant]
  8. FOLIC ACID [Concomitant]
  9. YAZ [Suspect]
     Indication: PRODUCT USED FOR UNKNOWN INDICATION
     Route: 048
     Dates: start: 20080710, end: 20090604
  10. COMPAZINE [Concomitant]
  11. MORPHINE [Concomitant]
  12. LORTAB [Concomitant]
  13. PHENERGAN HCL [Concomitant]
  14. ATIVIAN ROBINOL [Concomitant]

REACTIONS (3)
  - CHOLECYSTITIS ACUTE [None]
  - GALLBLADDER DISORDER [None]
  - CHOLELITHIASIS [None]
